FAERS Safety Report 7024036-X (Version None)
Quarter: 2010Q4

REPORT INFORMATION
  Report Type: 
  Country: None (occurrence: None)
  Receive Date: 20101001
  Receipt Date: 20100924
  Transmission Date: 20110411
  Serious: Yes (Other)
  Sender: FDA-Public Use
  Company Number: US-AMGEN-US383055

PATIENT
  Sex: Male

DRUGS (3)
  1. NPLATE [Suspect]
     Indication: IDIOPATHIC THROMBOCYTOPENIC PURPURA
     Route: 058
     Dates: start: 20091124, end: 20091208
  2. CORTICOSTEROIDS [Concomitant]
     Route: 065
     Dates: start: 20091116
  3. IMMU-G [Concomitant]
     Route: 042
     Dates: start: 20091121, end: 20091124

REACTIONS (5)
  - ARTHRALGIA [None]
  - CHILLS [None]
  - DRUG INEFFECTIVE [None]
  - RASH [None]
  - THERAPEUTIC RESPONSE DECREASED [None]
